FAERS Safety Report 23182270 (Version 1)
Quarter: 2023Q4

REPORT INFORMATION
  Report Type: Spontaneous
  Country: TR (occurrence: None)
  Receive Date: 20231114
  Receipt Date: 20231114
  Transmission Date: 20240110
  Serious: Yes (Life-Threatening)
  Sender: FDA-Public Use
  Company Number: 2023A258930

PATIENT
  Age: 68 Year
  Sex: Female
  Weight: 85 kg

DRUGS (8)
  1. NEXIUM [Suspect]
     Active Substance: ESOMEPRAZOLE MAGNESIUM
     Route: 048
  2. ASPIRIN\CLOPIDOGREL BISULFATE [Suspect]
     Active Substance: ASPIRIN\CLOPIDOGREL BISULFATE
     Route: 048
  3. CALCIUM DOBESILATE [Suspect]
     Active Substance: CALCIUM DOBESILATE
     Route: 048
  4. DEXKETOPROFEN [Suspect]
     Active Substance: DEXKETOPROFEN
     Route: 048
  5. MONOKET [Concomitant]
     Active Substance: ISOSORBIDE MONONITRATE
  6. PAROL [Concomitant]
     Active Substance: ACETAMINOPHEN
  7. CYANOCOBALAMIN\PYRIDOXINE\THIAMINE [Concomitant]
     Active Substance: CYANOCOBALAMIN\PYRIDOXINE\THIAMINE
  8. LIVERCOL [Concomitant]

REACTIONS (1)
  - Neutropenia [Not Recovered/Not Resolved]

NARRATIVE: CASE EVENT DATE: 20231103
